FAERS Safety Report 8498806-5 (Version None)
Quarter: 2012Q3

REPORT INFORMATION
  Report Type: 
  Country: None (occurrence: None)
  Receive Date: 20120709
  Receipt Date: 20120705
  Transmission Date: 20120928
  Serious: Yes (Hospitalization)
  Sender: FDA-Public Use
  Company Number: US-AMGEN-USASP2012040269

PATIENT
  Age: 70 Year
  Sex: Male
  Weight: 113.8 kg

DRUGS (3)
  1. CARBOPLATIN [Concomitant]
     Indication: SMALL CELL LUNG CANCER STAGE UNSPECIFIED
     Dosage: 6 UNK, Q3WK
     Route: 042
     Dates: start: 20120227, end: 20120609
  2. XGEVA [Suspect]
     Indication: PRODUCT USED FOR UNKNOWN INDICATION
     Dosage: 120 MG, UNK
     Route: 058
     Dates: start: 20120227, end: 20120227
  3. ETOPOSIDE [Concomitant]
     Indication: SMALL CELL LUNG CANCER STAGE UNSPECIFIED
     Dosage: 100 MG/M2, Q3WK
     Route: 042
     Dates: start: 20120113, end: 20120606

REACTIONS (2)
  - HYPOCALCAEMIA [None]
  - HYPOGLYCAEMIA [None]
